FAERS Safety Report 7360585-2 (Version None)
Quarter: 2011Q1

REPORT INFORMATION
  Report Type: 
  Country: None (occurrence: None)
  Receive Date: 20110309
  Receipt Date: 20110221
  Transmission Date: 20110831
  Serious: Yes (Hospitalization)
  Sender: FDA-Public Use
  Company Number: 2011MA001612

PATIENT
  Age: 60 Year
  Sex: Female
  Weight: 90 kg

DRUGS (1)
  1. FEVERALL [Suspect]
     Dosage: 1 G, QID;

REACTIONS (11)
  - MULTI-ORGAN FAILURE [None]
  - ENCEPHALOPATHY [None]
  - RENAL FAILURE [None]
  - POST PROCEDURAL COMPLICATION [None]
  - TOXICITY TO VARIOUS AGENTS [None]
  - COAGULOPATHY [None]
  - THROMBOCYTOPENIA [None]
  - ACUTE HEPATIC FAILURE [None]
  - ANAESTHETIC COMPLICATION [None]
  - CYTOLYTIC HEPATITIS [None]
  - HEPATIC STEATOSIS [None]
